FAERS Safety Report 7473068-6 (Version None)
Quarter: 2011Q2

REPORT INFORMATION
  Report Type: 
  Country: None (occurrence: None)
  Receive Date: 20110511
  Receipt Date: 20110502
  Transmission Date: 20111010
  Serious: Yes (Death)
  Sender: FDA-Public Use
  Company Number: HK-ROCHE-775232

PATIENT
  Age: 41 Year
  Sex: Female

DRUGS (3)
  1. CEFTRIAXONE SODIUM [Suspect]
     Dosage: UNKNOWN AT THE TIME OF DEATH
     Route: 065
  2. VANCOMYCIN [Suspect]
     Dosage: UNKNOWN AT THE TIME OF DEATH
     Route: 065
  3. METRONIDAZOLE [Suspect]
     Dosage: UNKNOWN AT THE TIME OF DEATH
     Route: 065

REACTIONS (1)
  - CAMPYLOBACTER INFECTION [None]
